FAERS Safety Report 6179823-7 (Version None)
Quarter: 2009Q2

REPORT INFORMATION
  Report Type: 
  Country: None (occurrence: None)
  Receive Date: 20090505
  Receipt Date: 20090504
  Transmission Date: 20091009
  Serious: No
  Sender: FDA-Public Use
  Company Number: US-B.I. PHARMACEUTICALS,INC./RIDGEFIELD-2009-BP-04959BP

PATIENT
  Sex: Male

DRUGS (1)
  1. MIRAPEX [Suspect]
     Indication: RESTLESS LEGS SYNDROME
     Dates: start: 20070101

REACTIONS (5)
  - ANGER [None]
  - HALLUCINATION [None]
  - HYPERSEXUALITY [None]
  - NAUSEA [None]
  - OBSESSIVE-COMPULSIVE DISORDER [None]
